FAERS Safety Report 9692614 (Version 3)
Quarter: 2014Q1

REPORT INFORMATION
  Report Type: Report from Study
  Country: US (occurrence: US)
  Receive Date: 20131118
  Receipt Date: 20140212
  Transmission Date: 20141002
  Serious: Yes (Other)
  Sender: FDA-Public Use
  Company Number: PHEH2013US023901

PATIENT
  Sex: Female
  Weight: 97.51 kg

DRUGS (17)
  1. GILENYA [Suspect]
     Indication: MULTIPLE SCLEROSIS
     Dosage: 0.5 MG, QD
     Route: 048
     Dates: start: 20131007
  2. AMPYRA [Concomitant]
     Dosage: 10 MG, QD
     Route: 048
  3. METFORMIN [Concomitant]
     Dosage: 500 MG, BID
     Route: 048
     Dates: start: 200904
  4. ZOLOFT [Concomitant]
     Dosage: 100 MG, UNK
  5. NECON [Concomitant]
     Route: 048
     Dates: start: 201204
  6. VITAMIIN C [Concomitant]
     Dosage: 500 MG, UNK
  7. DIOVAN [Concomitant]
     Dosage: 160 MG, QD
     Route: 048
     Dates: start: 200904
  8. PROTONIX [Concomitant]
     Route: 042
     Dates: start: 201204
  9. PROCHLORPERAZINE [Concomitant]
     Indication: NAUSEA
     Dosage: 25 MG, PRN
     Route: 048
  10. NOVOPEN [Concomitant]
     Indication: BLOOD GLUCOSE INCREASED
     Dosage: 3 U, UNK
  11. NOVOPEN [Concomitant]
     Dosage: 6 U, UNK
  12. NOVOPEN [Concomitant]
     Dosage: 9 U, UNK
  13. NOVOLOG [Concomitant]
  14. PENFILL R [Concomitant]
  15. HYDROMORPHONE HCL [Concomitant]
     Indication: HEADACHE
  16. SERTRALINE HCL [Concomitant]
     Indication: HEADACHE
     Dosage: 1 DF, QD
     Route: 048
  17. CYANOCOBALAMIN [Concomitant]
     Indication: HEADACHE

REACTIONS (4)
  - Fall [Unknown]
  - Facial bones fracture [Unknown]
  - Joint stiffness [Unknown]
  - Multiple sclerosis relapse [Unknown]
